FAERS Safety Report 9351519 (Version 4)
Quarter: 2019Q2

REPORT INFORMATION
  Report Type: Spontaneous
  Country: US (occurrence: US)
  Receive Date: 20130617
  Receipt Date: 20190403
  Transmission Date: 20190711
  Serious: Yes (Hospitalization)
  Sender: FDA-Public Use
  Company Number: US-PFIZER INC-2012039607

PATIENT
  Age: 58 Year
  Sex: Female
  Weight: 81.63 kg

DRUGS (28)
  1. LYRICA [Suspect]
     Active Substance: PREGABALIN
     Indication: NEUROPATHY PERIPHERAL
  2. LYRICA [Suspect]
     Active Substance: PREGABALIN
     Indication: SPINAL STENOSIS
  3. ADVAIR HFA [Concomitant]
     Active Substance: FLUTICASONE PROPIONATE\SALMETEROL XINAFOATE
     Indication: ASTHMA
     Dosage: 50/500 MG, 2X/DAY
  4. ZOCOR [Concomitant]
     Active Substance: SIMVASTATIN
     Indication: BLOOD CHOLESTEROL ABNORMAL
     Dosage: 40 MG, 1X/DAY
  5. FISH OIL [Concomitant]
     Active Substance: FISH OIL
     Indication: BLOOD TRIGLYCERIDES DECREASED
     Dosage: 1000-1500MG, 1X/DAY
  6. ESTRADIOL. [Concomitant]
     Active Substance: ESTRADIOL
     Indication: MENOPAUSE
     Dosage: 0.5 MG, 1X/DAY (1 IN PM)
  7. NYSTATIN. [Concomitant]
     Active Substance: NYSTATIN
     Indication: RASH
     Dosage: 100,000 USP, 4X/DAY
  8. FROVA [Concomitant]
     Active Substance: FROVATRIPTAN SUCCINATE
     Indication: MIGRAINE
     Dosage: 2.5 MG, 2X/DAY
  9. PRAVASTATIN. [Concomitant]
     Active Substance: PRAVASTATIN
     Indication: BLOOD CHOLESTEROL
     Dosage: 40 MG, 1X/DAY (1 IN AM)
  10. BABY ASPIRIN [Concomitant]
     Active Substance: ASPIRIN
     Indication: CARDIAC DISORDER
     Dosage: 81 MG, 1X/DAY
  11. FOCALIN [Concomitant]
     Active Substance: DEXMETHYLPHENIDATE HYDROCHLORIDE
     Indication: MENTAL DISORDER
     Dosage: 20 MG, 2X/DAY
  12. LYRICA [Suspect]
     Active Substance: PREGABALIN
     Indication: MIGRAINE
     Dosage: 75 MG, 1X/DAY (1PM ONLY)
     Route: 048
  13. LYRICA [Suspect]
     Active Substance: PREGABALIN
     Indication: PHOTOPHOBIA
     Dosage: 100 MG, 3X/DAY
  14. LYRICA [Suspect]
     Active Substance: PREGABALIN
     Indication: SEIZURE
     Dosage: 150 MG, 3X/DAY
  15. LYRICA [Suspect]
     Active Substance: PREGABALIN
     Indication: SPINAL PAIN
  16. PRIMLEV [Concomitant]
     Active Substance: ACETAMINOPHEN\OXYCODONE HYDROCHLORIDE
     Indication: BACK PAIN
     Dosage: 10/300 MG, AS NEEDED
  17. METOPROLOL TARTRATE. [Concomitant]
     Active Substance: METOPROLOL TARTRATE
     Indication: BLOOD PRESSURE ABNORMAL
     Dosage: 50 MG, 2X/DAY
  18. BACLOFEN. [Concomitant]
     Active Substance: BACLOFEN
     Indication: BACK DISORDER
     Dosage: 10 MG, 2X/DAY
  19. LYRICA [Suspect]
     Active Substance: PREGABALIN
     Indication: NERVE INJURY
  20. MULTIVITAMINS [Concomitant]
     Active Substance: VITAMINS
     Dosage: UNK
  21. FOCALIN [Concomitant]
     Active Substance: DEXMETHYLPHENIDATE HYDROCHLORIDE
     Indication: EPSTEIN-BARR VIRAEMIA
  22. LAMICTAL [Concomitant]
     Active Substance: LAMOTRIGINE
     Indication: MENTAL DISORDER
     Dosage: 275 MG, DAILY (150MG AM 125MG PM)
  23. LYRICA [Suspect]
     Active Substance: PREGABALIN
     Indication: BACK PAIN
  24. HYDROXYZINE PAMOATE. [Concomitant]
     Active Substance: HYDROXYZINE PAMOATE
     Indication: ANXIETY
     Dosage: 100 MG, 2X/DAY (4X 25MG IN AM AND 4X 25 MG IN PM)
  25. PROTONIX [Concomitant]
     Active Substance: PANTOPRAZOLE SODIUM
     Indication: GASTROOESOPHAGEAL REFLUX DISEASE
     Dosage: 40 MG, 2X/DAY (40 MG 1 IN AM 1 IN PM)
  26. DICYCLOMINE [Concomitant]
     Active Substance: DICYCLOMINE HYDROCHLORIDE
     Indication: IRRITABLE BOWEL SYNDROME
     Dosage: 20 MG, 2X/DAY (1 IN AM 1 IN PM)
  27. ZESTRIL [Concomitant]
     Active Substance: LISINOPRIL
     Dosage: UNK
  28. MEDROXYPROGESTERONE ACETATE. [Concomitant]
     Active Substance: MEDROXYPROGESTERONE ACETATE
     Indication: MENOPAUSE
     Dosage: 2.5 MG, 1X/DAY (1 IN PM)

REACTIONS (2)
  - Drug ineffective [Unknown]
  - Pain [Unknown]

NARRATIVE: CASE EVENT DATE: 201209
